FAERS Safety Report 18710989 (Version 2)
Quarter: 2021Q1

REPORT INFORMATION
  Report Type: Spontaneous
  Country: US (occurrence: US)
  Receive Date: 20210107
  Receipt Date: 20210206
  Transmission Date: 20210419
  Serious: No
  Sender: FDA-Public Use
  Company Number: US-009507513-2012USA009824

PATIENT
  Sex: Female
  Weight: 104.31 kg

DRUGS (2)
  1. NEXPLANON [Suspect]
     Active Substance: ETONOGESTREL
     Dosage: PREVIOUS IMPLANT
     Route: 059
  2. NEXPLANON [Suspect]
     Active Substance: ETONOGESTREL
     Dosage: 1 DOSAGE FORM, LEFT ARM, NON?DOMINANT ARM
     Route: 058
     Dates: start: 20180608, end: 20201221

REACTIONS (3)
  - Hirsutism [Unknown]
  - Complication of device removal [Recovered/Resolved]
  - Vaginal haemorrhage [Unknown]
